FAERS Safety Report 16926211 (Version 1)
Quarter: 2019Q4

REPORT INFORMATION
  Report Type: Spontaneous
  Country: GB (occurrence: GB)
  Receive Date: 20191016
  Receipt Date: 20191016
  Transmission Date: 20200122
  Serious: Yes (Disabling)
  Sender: FDA-Public Use
  Company Number: GB-MYLANLABS-2019M1097243

PATIENT
  Age: 36 Year
  Sex: Female
  Weight: 103 kg

DRUGS (8)
  1. LAMOTRIGINE. [Suspect]
     Active Substance: LAMOTRIGINE
     Indication: PRODUCT USED FOR UNKNOWN INDICATION
     Dosage: TAKE ONE AT NIGHT FOR 2 WEEKS THEN TAKE TWO AT
     Dates: start: 20190719
  2. FOSTAIR [Concomitant]
     Active Substance: BECLOMETHASONE\FORMOTEROL
     Dosage: AS A PREVENTER,  CAN TAKE
     Dates: start: 20190405
  3. OILATUM                            /01690401/ [Concomitant]
     Dosage: APPLY TO THE AFFECTED AREAS AS DIRECTED.
     Dates: start: 20190205
  4. FEXOFENADINE [Concomitant]
     Active Substance: FEXOFENADINE HYDROCHLORIDE
     Dosage: 1 DOSAGE FORM, QD
     Dates: start: 20190724
  5. VENTOLIN [Concomitant]
     Active Substance: ALBUTEROL SULFATE
     Dosage: FOUR TIMES A DAY (FOR ASTHMA/C.
     Dates: start: 20190108
  6. SINGULAIR [Concomitant]
     Active Substance: MONTELUKAST SODIUM
     Dosage: AT NIGHT
     Dates: start: 20190108
  7. CERAZETTE                          /00754001/ [Concomitant]
     Active Substance: DESOGESTREL
     Dosage: 1 DOSAGE FORM, QD
     Dates: start: 20190405
  8. PREDNISOLONE. [Concomitant]
     Active Substance: PREDNISOLONE
     Dosage: FOR 5 DAYS
     Dates: start: 20190724

REACTIONS (2)
  - Oral mucosal blistering [Unknown]
  - Mouth ulceration [Unknown]
